FAERS Safety Report 7937920-7 (Version None)
Quarter: 2011Q4

REPORT INFORMATION
  Report Type: 
  Country: None (occurrence: None)
  Receive Date: 20111123
  Receipt Date: 20111121
  Transmission Date: 20120403
  Serious: Yes (Hospitalization, Other)
  Sender: FDA-Public Use
  Company Number: US-BAYER-2011-072324

PATIENT
  Age: 44 Year
  Sex: Female

DRUGS (6)
  1. INTERFERON BETA-1B [Suspect]
     Dosage: UNK
     Dates: start: 20100719, end: 20110215
  2. VERPAMIL [Concomitant]
     Indication: HYPERTENSION
     Dosage: 180 MG, QD
  3. LISINOPRIL [Concomitant]
     Indication: HYPERTENSION
  4. INTERFERON BETA-1B [Suspect]
     Indication: MULTIPLE SCLEROSIS
     Dosage: UNK
     Dates: start: 20100419, end: 20100619
  5. INTERFERON BETA-1B [Suspect]
     Dosage: 8 MIU, QOD
     Route: 058
     Dates: start: 20111021
  6. INTERFERON BETA-1B [Suspect]
     Dosage: 8 MIU, QOD
     Route: 058
     Dates: start: 20110513, end: 20110913

REACTIONS (9)
  - BONE PAIN [None]
  - BRONCHITIS [None]
  - MIGRAINE [None]
  - INJECTION SITE ERYTHEMA [None]
  - GASTRIC PH DECREASED [None]
  - BACK PAIN [None]
  - VOMITING [None]
  - INJECTION SITE RASH [None]
  - ASTHENIA [None]
